FAERS Safety Report 7097796-X (Version None)
Quarter: 2010Q4

REPORT INFORMATION
  Report Type: 
  Country: None (occurrence: None)
  Receive Date: 20101112
  Receipt Date: 20101102
  Transmission Date: 20110411
  Serious: Yes (Death)
  Sender: FDA-Public Use
  Company Number: CA-RANBAXY-2010US-39242

PATIENT

DRUGS (3)
  1. CLARITHROMYCIN [Suspect]
     Indication: EAR INFECTION
     Dosage: UNK, UNK
     Route: 065
  2. VALPROIC ACID [Interacting]
     Indication: CONVULSION
     Dosage: 250 MG, BID
     Route: 065
  3. HYDROCODONE [Interacting]
     Indication: NASOPHARYNGITIS
     Dosage: 1 MG/ML (1 TEASPOON TID)
     Route: 048

REACTIONS (8)
  - ACCIDENTAL OVERDOSE [None]
  - DIZZINESS [None]
  - DRUG INTERACTION [None]
  - EAR INFECTION [None]
  - LETHARGY [None]
  - MEDICATION ERROR [None]
  - NASOPHARYNGITIS [None]
  - UNRESPONSIVE TO STIMULI [None]
